FAERS Safety Report 4890754-2 (Version None)
Quarter: 2006Q1

REPORT INFORMATION
  Report Type: 
  Country: None (occurrence: None)
  Receive Date: 20060123
  Receipt Date: 20060116
  Transmission Date: 20060701
  Serious: Yes (Hospitalization)
  Sender: FDA-Public Use
  Company Number: 2005US001027

PATIENT
  Age: 23 Year
  Sex: Male

DRUGS (10)
  1. PROGRAF [Suspect]
     Indication: PROPHYLAXIS AGAINST TRANSPLANT REJECTION
     Dosage: 3 MG, BID, ORAL
     Route: 048
     Dates: start: 20050615
  2. MYCOPHENOLATE MOFETIL (MYCOPHENOLATE MOFETIL) [Suspect]
     Indication: PROPHYLAXIS AGAINST TRANSPLANT REJECTION
     Dosage: 100 MG, BID, ORAL
     Route: 048
  3. PREDNISONE [Suspect]
     Indication: PROPHYLAXIS AGAINST TRANSPLANT REJECTION
     Dosage: 10 MG,  UID/QD , ORAL
     Route: 048
  4. BACTRIM (SULFAMETHOXAZOLE,  TIRMETHOPRIM) [Concomitant]
  5. FLUCONAZOLE [Concomitant]
  6. CLONIDINE [Concomitant]
  7. ACYCLOVIR [Concomitant]
  8. PEPCID [Concomitant]
  9. NORVASC [Concomitant]
  10. ACIPEX (RABEPRAZOLE SODIUM) [Concomitant]

REACTIONS (2)
  - FOCAL GLOMERULOSCLEROSIS [None]
  - HYPERKALAEMIA [None]
